FAERS Safety Report 14362729 (Version 3)
Quarter: 2018Q3

REPORT INFORMATION
  Report Type: Spontaneous
  Country: JP (occurrence: JP)
  Receive Date: 20180108
  Receipt Date: 20180703
  Transmission Date: 20181010
  Serious: Yes (Hospitalization)
  Sender: FDA-Public Use
  Company Number: JP-BAYER-2017-250901

PATIENT
  Age: 73 Year
  Sex: Male
  Weight: 79.3 kg

DRUGS (14)
  1. STIVARGA [Suspect]
     Active Substance: REGORAFENIB
     Indication: HEPATOCELLULAR CARCINOMA
     Dosage: UNK
     Route: 048
     Dates: start: 20171122, end: 20171228
  2. HUMULIN 3/7 [Concomitant]
     Indication: DIABETES MELLITUS
     Dosage: 9 UNIT BEFORE BREAKFAST, 12 UNIT BEFORE DINNER
     Route: 058
     Dates: start: 20170927
  3. DOMPERIDONE [Concomitant]
     Active Substance: DOMPERIDONE
     Indication: PROPHYLAXIS OF NAUSEA AND VOMITING
     Dosage: 3DF DAILY
     Route: 048
     Dates: start: 20170927
  4. MIGLITOL. [Concomitant]
     Active Substance: MIGLITOL
     Indication: DIABETES MELLITUS
     Dosage: 3 DF DAILY
     Route: 048
     Dates: start: 20170927
  5. REBAMIPIDE [Concomitant]
     Active Substance: REBAMIPIDE
     Indication: GASTRITIS PROPHYLAXIS
     Dosage: 1DF DAILY
     Route: 048
     Dates: start: 20171129
  6. ALENDRONATE SODIUM. [Concomitant]
     Active Substance: ALENDRONATE SODIUM
     Indication: OSTEOPOROSIS
     Dosage: 1DF DAILY
     Route: 048
     Dates: start: 20170407
  7. TELMISARTAN. [Concomitant]
     Active Substance: TELMISARTAN
     Indication: HYPERTENSION
     Dosage: UNK
     Route: 048
     Dates: start: 20170927
  8. LASIX [Concomitant]
     Active Substance: FUROSEMIDE
     Indication: OEDEMA
     Dosage: 0.5 DF DAILY
     Route: 048
     Dates: start: 20170927
  9. HERBAL NOS [Concomitant]
     Active Substance: HERBALS
     Indication: MUSCLE SPASMS
     Dosage: 1 DF DAILY, PRN
     Route: 048
     Dates: start: 20150525, end: 20180214
  10. TRAMADOL HYDROCHLORIDE. [Concomitant]
     Active Substance: TRAMADOL HYDROCHLORIDE
     Indication: PAIN MANAGEMENT
     Dosage: 4DF DAILY
     Route: 048
     Dates: start: 20170927
  11. REBAMIPIDE [Concomitant]
     Active Substance: REBAMIPIDE
     Indication: ULCER
  12. STIVARGA [Suspect]
     Active Substance: REGORAFENIB
     Indication: HEPATOCELLULAR CARCINOMA
     Dosage: UNK
     Route: 048
     Dates: start: 20170928, end: 20171109
  13. NIFEDIPINE. [Concomitant]
     Active Substance: NIFEDIPINE
     Indication: HYPERTENSION
     Dosage: 2 DF DAILY
     Route: 048
     Dates: start: 20140818
  14. LOXOPROFEN [Concomitant]
     Active Substance: LOXOPROFEN
     Indication: PAIN
     Dosage: 1DF DAILY, PRN
     Route: 048
     Dates: start: 20171129

REACTIONS (2)
  - Interstitial lung disease [Recovering/Resolving]
  - Dyspnoea [Recovering/Resolving]

NARRATIVE: CASE EVENT DATE: 20171225
